FAERS Safety Report 9830925 (Version 1)
Quarter: 2014Q1

REPORT INFORMATION
  Report Type: Spontaneous
  Country: US (occurrence: US)
  Receive Date: 20140120
  Receipt Date: 20140120
  Transmission Date: 20141002
  Serious: No
  Sender: FDA-Public Use
  Company Number: US-MYLANLABS-2013S1022731

PATIENT
  Sex: Female

DRUGS (8)
  1. KETAMINE HYDROCHLORIDE INJECTION USP [Suspect]
     Route: 042
  2. NEURONTIN [Concomitant]
     Route: 048
  3. CYMBALTA [Concomitant]
     Route: 048
  4. RESTORIL [Concomitant]
     Route: 048
  5. XANAX [Concomitant]
     Route: 048
  6. TRAZODONE [Concomitant]
     Route: 048
  7. OPANA [Concomitant]
     Route: 048
  8. BACLOFEN [Concomitant]
     Route: 048

REACTIONS (2)
  - Nausea [Recovered/Resolved]
  - Vein discolouration [Recovered/Resolved]
